FAERS Safety Report 4771627-2 (Version None)
Quarter: 2005Q3

REPORT INFORMATION
  Report Type: 
  Country: None (occurrence: None)
  Receive Date: 20050916
  Receipt Date: 20050907
  Transmission Date: 20060218
  Serious: Yes (Hospitalization, Other)
  Sender: FDA-Public Use
  Company Number: GB-JNJFOC-20041106352

PATIENT
  Sex: Male
  Weight: 85 kg

DRUGS (18)
  1. REMICADE [Suspect]
     Indication: RHEUMATOID ARTHRITIS
     Route: 042
  2. LEFLUNOMIDE [Concomitant]
  3. VOLTAROL [Concomitant]
  4. TRAMADOL [Concomitant]
  5. TRAMADOL [Concomitant]
  6. TRAMADOL [Concomitant]
  7. TRAMADOL [Concomitant]
  8. TRAMADOL [Concomitant]
  9. TRAMADOL [Concomitant]
  10. LOSEC [Concomitant]
  11. METHOTREXATE [Concomitant]
     Route: 065
  12. FOLIC ACID [Concomitant]
     Route: 065
  13. PREDNISOLONE [Concomitant]
     Route: 065
  14. LANZOPRAZOLE [Concomitant]
     Route: 065
  15. FOSAMAX [Concomitant]
     Route: 065
  16. GABAPENTIN [Concomitant]
     Route: 065
  17. BECLOMETHASONE DIPROPIONATE [Concomitant]
     Route: 055
  18. ALBUTEROL SULFATE HFA [Concomitant]
     Route: 055

REACTIONS (1)
  - LEGIONELLA INFECTION [None]
